FAERS Safety Report 9178276 (Version 1)
Quarter: 2012Q4

REPORT INFORMATION
  Report Type: 
  Country: FR (occurrence: FR)
  Receive Date: 20121029
  Receipt Date: 20121029
  Transmission Date: 20130627
  Serious: Yes (Life-Threatening, Hospitalization, Other)
  Sender: FDA-Public Use
  Company Number: FR-PFIZER INC-2012266158

PATIENT
  Age: 69 Year
  Sex: Female

DRUGS (6)
  1. ZOLOFT [Suspect]
     Dosage: UNK
     Route: 048
     Dates: start: 20120622, end: 20120622
  2. TRANXENE [Suspect]
     Dosage: 20 mg, UNK
     Route: 048
     Dates: start: 20120622, end: 20120622
  3. RISPERDAL [Suspect]
     Dosage: UNK
     Route: 048
     Dates: start: 20120622, end: 20120622
  4. NOZINAN [Suspect]
     Dosage: UNK
     Route: 048
     Dates: start: 20120622, end: 20120622
  5. STAGID [Concomitant]
     Indication: TYPE 2 DIABETES MELLITUS
  6. ANAFRANIL [Concomitant]
     Dosage: 75 mg, 2x/day

REACTIONS (3)
  - Suicide attempt [Unknown]
  - Coma [Recovered/Resolved]
  - Pneumonia bacterial [Unknown]
